FAERS Safety Report 16393540 (Version 1)
Quarter: 2019Q3

REPORT INFORMATION
  Report Type: Spontaneous
  Country: GB (occurrence: GB)
  Receive Date: 20190603
  Receipt Date: 20190603
  Transmission Date: 20191004
  Serious: Yes (Disabling)
  Sender: FDA-Public Use
  Company Number: None

PATIENT
  Age: 13 Year
  Sex: Male

DRUGS (1)
  1. SINGULAIR [Suspect]
     Active Substance: MONTELUKAST SODIUM
     Indication: ASTHMA
     Dosage: ?          QUANTITY:28 TABLET(S);?
     Route: 048

REACTIONS (8)
  - Aggression [None]
  - Obsessive-compulsive symptom [None]
  - Anxiety [None]
  - Head titubation [None]
  - Suicidal ideation [None]
  - Insomnia [None]
  - Hallucination [None]
  - Muscle twitching [None]

NARRATIVE: CASE EVENT DATE: 20130101
